FAERS Safety Report 5196091-3 (Version None)
Quarter: 2006Q4

REPORT INFORMATION
  Report Type: 
  Country: None (occurrence: None)
  Receive Date: 20061222
  Receipt Date: 20061208
  Transmission Date: 20070319
  Serious: Yes (Life-Threatening, Other)
  Sender: FDA-Public Use
  Company Number: 2006RR-04519

PATIENT
  Age: 30 Year
  Sex: Female

DRUGS (3)
  1. METOCLOPRAMIDE [Suspect]
     Dosage: 10 MG, INTRAVENOUS
     Route: 042
     Dates: start: 20060501
  2. RANITIDINE HCL [Suspect]
     Dosage: 50 MG, QD, INTRAVENOUS
     Route: 042
  3. ZANTAC [Suspect]
     Indication: PREMEDICATION
     Dosage: 50 MG, QD, INTRAVENOUS
     Route: 042

REACTIONS (1)
  - ANAPHYLACTIC REACTION [None]
